FAERS Safety Report 23803817 (Version 1)
Quarter: 2024Q2

REPORT INFORMATION
  Report Type: Spontaneous
  Country: US (occurrence: None)
  Receive Date: 20240430
  Receipt Date: 20240430
  Transmission Date: 20240716
  Serious: No
  Sender: FDA-Public Use
  Company Number: None

PATIENT
  Sex: Female
  Weight: 71.1 kg

DRUGS (8)
  1. REFRESH TEARS LUBRICANT [Suspect]
     Active Substance: CARBOXYMETHYLCELLULOSE SODIUM
     Indication: Dry eye
     Dosage: OTHER FREQUENCY : 2-3 TIMES PER DAY;?
     Route: 047
  2. VITAMIN D [Concomitant]
     Active Substance: VITAMIN D NOS
  3. OMEGA 3 [Concomitant]
     Active Substance: CAPSAICIN
  4. TYLENOL [Concomitant]
     Active Substance: ACETAMINOPHEN
  5. ALBUTEROL [Concomitant]
     Active Substance: ALBUTEROL
  6. VENTOLIN [Concomitant]
     Active Substance: ALBUTEROL SULFATE
  7. ADVAIR DISKUS [Concomitant]
     Active Substance: FLUTICASONE PROPIONATE\SALMETEROL XINAFOATE
  8. flonase [Concomitant]

REACTIONS (5)
  - Vision blurred [None]
  - Visual impairment [None]
  - Eye disorder [None]
  - Visual impairment [None]
  - Eyelid disorder [None]
